FAERS Safety Report 14686761 (Version 4)
Quarter: 2018Q2

REPORT INFORMATION
  Report Type: Report from Study
  Country: US (occurrence: US)
  Receive Date: 20180327
  Receipt Date: 20180618
  Transmission Date: 20180711
  Serious: Yes (Other)
  Sender: FDA-Public Use
  Company Number: US-ACTELION-A-US2018-167378

PATIENT
  Age: 51 Year
  Sex: Male
  Weight: 82.99 kg

DRUGS (4)
  1. SILDENAFIL CITRATE. [Concomitant]
     Active Substance: SILDENAFIL CITRATE
  2. OPSUMIT [Suspect]
     Active Substance: MACITENTAN
     Indication: PULMONARY ARTERIAL HYPERTENSION
     Dosage: 10 MG, QD
     Route: 048
  3. UPTRAVI [Suspect]
     Active Substance: SELEXIPAG
     Indication: PULMONARY ARTERIAL HYPERTENSION
     Dosage: 600 MCG, BID
     Route: 048
  4. UPTRAVI [Suspect]
     Active Substance: SELEXIPAG
     Dosage: 1600 MCG, BID
     Route: 048

REACTIONS (20)
  - Dizziness [Unknown]
  - Seasonal allergy [Unknown]
  - Headache [Unknown]
  - Dyspnoea [Unknown]
  - Oxygen saturation decreased [Unknown]
  - Condition aggravated [Unknown]
  - Pain in jaw [Unknown]
  - Fatigue [Unknown]
  - Diarrhoea [Unknown]
  - Pulmonary oedema [Unknown]
  - Cardiac failure congestive [Unknown]
  - Loss of consciousness [Unknown]
  - Insomnia [Unknown]
  - Treatment noncompliance [Unknown]
  - Back pain [Unknown]
  - Myalgia [Unknown]
  - Musculoskeletal stiffness [Unknown]
  - Nasal discomfort [Unknown]
  - Pain [Unknown]
  - Abdominal discomfort [Unknown]
